FAERS Safety Report 6736911-1 (Version None)
Quarter: 2010Q2

REPORT INFORMATION
  Report Type: 
  Country: None (occurrence: None)
  Receive Date: 20100521
  Receipt Date: 20100510
  Transmission Date: 20101027
  Serious: Yes (Death)
  Sender: FDA-Public Use
  Company Number: US-AMGEN-QUU411348

PATIENT
  Sex: Female

DRUGS (22)
  1. NPLATE [Suspect]
     Indication: IDIOPATHIC THROMBOCYTOPENIC PURPURA
     Dates: start: 20100503, end: 20100503
  2. CORTICOSTEROIDS [Concomitant]
     Dates: start: 20100430, end: 20100503
  3. IMMU-G [Concomitant]
     Dates: start: 20100430, end: 20100502
  4. ALBUMIN (HUMAN) [Concomitant]
  5. TACROLIMUS [Concomitant]
  6. VITAMIN K TAB [Concomitant]
  7. METOCLOPRAMIDE [Concomitant]
  8. LINEZOLID [Concomitant]
  9. FOLIC ACID [Concomitant]
  10. ERGOCALCIFEROL [Concomitant]
  11. CONJUGATED ESTROGENS [Concomitant]
  12. CEFEPIME [Concomitant]
  13. AMINOCAPROIC ACID [Concomitant]
  14. PANTOPRAZOLE [Concomitant]
  15. MULTI-VITAMINS [Concomitant]
  16. METRONIDAZOLE [Concomitant]
  17. INSULIN [Concomitant]
  18. MIDAZOLAM HCL [Concomitant]
  19. FENTANYL [Concomitant]
  20. NOREPINEPHRINE [Concomitant]
  21. PROPOFOL [Concomitant]
  22. SODIUM BICARBONATE [Concomitant]

REACTIONS (3)
  - BACTERAEMIA [None]
  - BLOOD LACTIC ACID INCREASED [None]
  - HYPOTENSION [None]
